FAERS Safety Report 19752390 (Version 2)
Quarter: 2021Q4

REPORT INFORMATION
  Report Type: Report from Study
  Country: GB (occurrence: GB)
  Receive Date: 20210827
  Receipt Date: 20211117
  Transmission Date: 20220303
  Serious: Yes (Hospitalization)
  Sender: FDA-Public Use
  Company Number: GB-ONCOPEPPR-00863

PATIENT
  Age: 74 Year
  Sex: Male

DRUGS (11)
  1. MELPHALAN FLUFENAMIDE HYDROCHLORIDE [Suspect]
     Active Substance: MELPHALAN FLUFENAMIDE HYDROCHLORIDE
     Indication: Plasma cell myeloma
     Route: 042
     Dates: start: 20210611
  2. MELPHALAN FLUFENAMIDE HYDROCHLORIDE [Suspect]
     Active Substance: MELPHALAN FLUFENAMIDE HYDROCHLORIDE
     Indication: Plasma cell myeloma
     Route: 042
     Dates: start: 20210709
  3. MELPHALAN FLUFENAMIDE HYDROCHLORIDE [Suspect]
     Active Substance: MELPHALAN FLUFENAMIDE HYDROCHLORIDE
     Indication: Plasma cell myeloma
     Route: 042
     Dates: start: 20210803
  4. 11070 (GLOBALC3Mar20): Docusate [Concomitant]
     Dosage: TIME INTERVAL: AS NECESSARY
  5. 1286972 (GLOBALC3Mar20): acyclovir [Concomitant]
  6. 3460339 (GLOBALC3Mar20): co-trimoxazole [Concomitant]
     Dosage: (480MG BD MONDAY/WEDNESDAY/FRIDAY)
  7. 1826617 (GLOBALC3Mar20): Lansoprazole [Concomitant]
  8. 3054406 (GLOBALC3Mar20): pregabalin [Concomitant]
  9. 4156265 (GLOBALC3Mar20): dutasteride [Concomitant]
  10. 1285422 (GLOBALC3Mar20): bisacodyl [Concomitant]
     Dosage: (AT NIGHT)
  11. 3755187 (GLOBALC3Mar20): adcal D3 [Concomitant]

REACTIONS (6)
  - Staphylococcal bacteraemia [Recovered/Resolved]
  - Hypotension [Unknown]
  - Pyrexia [Unknown]
  - Device related infection [Unknown]
  - Sepsis [Unknown]
  - Fatigue [Recovering/Resolving]

NARRATIVE: CASE EVENT DATE: 20210711
